FAERS Safety Report 24020408 (Version 3)
Quarter: 2024Q3

REPORT INFORMATION
  Report Type: Spontaneous
  Country: CN (occurrence: CN)
  Receive Date: 20240627
  Receipt Date: 20240728
  Transmission Date: 20241017
  Serious: Yes (Hospitalization)
  Sender: JOHNSON AND JOHNSON
  Company Number: CN-JNJFOC-20240657461

PATIENT

DRUGS (1)
  1. TREMFYA [Suspect]
     Active Substance: GUSELKUMAB
     Indication: Psoriasis
     Dosage: 0, 4 WEEKS
     Route: 065

REACTIONS (3)
  - Hospitalisation [Unknown]
  - Erythrodermic psoriasis [Unknown]
  - Drug ineffective [Unknown]
